FAERS Safety Report 17281672 (Version 1)
Quarter: 2020Q1

REPORT INFORMATION
  Report Type: Spontaneous
  Country: US (occurrence: US)
  Receive Date: 20191227
  Receipt Date: 20191227
  Transmission Date: 20200409
  Serious: No
  Sender: FDA-Public Use
  Company Number: None

PATIENT
  Age: 45 Year
  Sex: Female

DRUGS (1)
  1. EMGALITY [Suspect]
     Active Substance: GALCANEZUMAB-GNLM
     Indication: MIGRAINE
     Route: 058
     Dates: start: 20191128, end: 20191226

REACTIONS (5)
  - Weight increased [None]
  - Pruritus [None]
  - Migraine [None]
  - Constipation [None]
  - Drug hypersensitivity [None]

NARRATIVE: CASE EVENT DATE: 20191128
